FAERS Safety Report 9038863 (Version 1)
Quarter: 2013Q1

REPORT INFORMATION
  Report Type: Spontaneous
  Country: US (occurrence: US)
  Receive Date: 20130129
  Receipt Date: 20130129
  Transmission Date: 20140127
  Serious: Yes (Other)
  Sender: FDA-Public Use
  Company Number: US-009507513-1205USA03108

PATIENT
  Age: 50 Year
  Sex: Female
  Weight: 58.97 kg

DRUGS (2)
  1. SINGULAIR [Suspect]
     Indication: PULMONARY CONGESTION
     Dosage: UNK UNK, QD
     Route: 048
     Dates: start: 20110512, end: 20110514
  2. ALBUTEROL SULFATE [Concomitant]

REACTIONS (13)
  - Arthralgia [Unknown]
  - Burning sensation [Unknown]
  - Crying [Unknown]
  - Dysstasia [Unknown]
  - Fall [Unknown]
  - Fear [Unknown]
  - Flank pain [Unknown]
  - Hyperhidrosis [Unknown]
  - Middle insomnia [Unknown]
  - Movement disorder [Unknown]
  - Pain [Unknown]
  - Pain in extremity [Unknown]
  - Thirst [Unknown]
